FAERS Safety Report 8034670-6 (Version None)
Quarter: 2012Q1

REPORT INFORMATION
  Report Type: 
  Country: None (occurrence: None)
  Receive Date: 20120111
  Receipt Date: 20120106
  Transmission Date: 20120608
  Serious: Yes (Other)
  Sender: FDA-Public Use
  Company Number: US-BRISTOL-MYERS SQUIBB COMPANY-16333916

PATIENT
  Age: 31 Year
  Sex: Female
  Weight: 134 kg

DRUGS (4)
  1. ABILIFY [Suspect]
     Dosage: ALSO ON 15MG. DURATION: ABOUT 9 YEARS. DECREASED TO 5MG ABOUT 4 MONTHS AGO.
  2. KLONOPIN [Concomitant]
  3. DOXEPIN [Concomitant]
  4. ARTANE [Concomitant]

REACTIONS (2)
  - WEIGHT INCREASED [None]
  - SLEEP APNOEA SYNDROME [None]
